FAERS Safety Report 6531197-5 (Version None)
Quarter: 2010Q1

REPORT INFORMATION
  Report Type: 
  Country: None (occurrence: None)
  Receive Date: 20100108
  Receipt Date: 20091228
  Transmission Date: 20100710
  Serious: Yes (Hospitalization)
  Sender: FDA-Public Use
  Company Number: PHHY2009JP59274

PATIENT
  Sex: Female
  Weight: 37 kg

DRUGS (10)
  1. ICL670A ICL+DISTAB [Suspect]
     Indication: MYELOFIBROSIS
     Dosage: 500 MG DAILY
     Route: 048
     Dates: start: 20090512, end: 20090523
  2. ICL670A ICL+DISTAB [Suspect]
     Indication: IRON OVERLOAD
     Dosage: 500 MG DAILY
     Route: 048
     Dates: start: 20090609, end: 20090801
  3. ICL670A ICL+DISTAB [Suspect]
     Dosage: 500 MG DAILY
     Route: 048
     Dates: start: 20090908, end: 20090927
  4. ICL670A ICL+DISTAB [Suspect]
     Dosage: 100 MG DAILY
     Route: 048
     Dates: start: 20091013, end: 20091120
  5. LASIX [Concomitant]
     Indication: CARDIAC FAILURE
     Dosage: 20 MG, UNK
     Route: 048
     Dates: start: 20090326
  6. ALDACTONE [Concomitant]
     Indication: CARDIAC FAILURE
     Dosage: 25 MG, UNK
     Route: 048
     Dates: start: 20090326
  7. FRANDOL [Concomitant]
     Indication: CARDIAC FAILURE
     Dosage: 40 MG, UNK
     Route: 062
     Dates: start: 20090326
  8. TAKEPRON [Concomitant]
     Dosage: 30 MG, UNK
     Route: 048
     Dates: start: 20090525
  9. PRIMOBOLAN [Concomitant]
     Indication: MYELOFIBROSIS
     Dosage: 15 MG, UNK
     Route: 048
     Dates: start: 20090609
  10. RED BLOOD CELLS [Concomitant]
     Dosage: 2 UNITS EVERY 1 TO 2 WEEKS
     Dates: start: 20090323

REACTIONS (13)
  - DECREASED APPETITE [None]
  - DIARRHOEA [None]
  - GASTROINTESTINAL DISORDER [None]
  - GASTROINTESTINAL INFECTION [None]
  - LEUKAEMIA [None]
  - MALIGNANT NEOPLASM PROGRESSION [None]
  - MONOCYTE COUNT INCREASED [None]
  - NAUSEA [None]
  - NEUTROPHIL COUNT DECREASED [None]
  - PROTEINURIA [None]
  - RENAL IMPAIRMENT [None]
  - VOMITING [None]
  - WHITE BLOOD CELL COUNT INCREASED [None]
